FAERS Safety Report 25837712 (Version 1)
Quarter: 2025Q3

REPORT INFORMATION
  Report Type: Spontaneous
  Country: US (occurrence: US)
  Receive Date: 20250923
  Receipt Date: 20250923
  Transmission Date: 20251021
  Serious: Yes (Hospitalization)
  Sender: ELI LILLY AND COMPANY
  Company Number: US-ELI_LILLY_AND_COMPANY-US202509000046

PATIENT
  Age: 52 Year
  Sex: Male
  Weight: 67 kg

DRUGS (1)
  1. HUMALOG [Suspect]
     Active Substance: INSULIN LISPRO
     Indication: Product used for unknown indication
     Route: 065

REACTIONS (3)
  - Lower limb fracture [Unknown]
  - Fall [Unknown]
  - Hypoglycaemic unconsciousness [Unknown]

NARRATIVE: CASE EVENT DATE: 20250725
